FAERS Safety Report 24069572 (Version 1)
Quarter: 2024Q3

REPORT INFORMATION
  Report Type: Spontaneous
  Country: RU (occurrence: RU)
  Receive Date: 20240710
  Receipt Date: 20240710
  Transmission Date: 20241017
  Serious: No
  Sender: ROCHE
  Company Number: RU-ROCHE-3460154

PATIENT
  Age: 39 Year
  Sex: Male

DRUGS (2)
  1. ALECTINIB [Suspect]
     Active Substance: ALECTINIB
     Indication: Product used for unknown indication
     Route: 065
     Dates: end: 202305
  2. LORLATINIB [Suspect]
     Active Substance: LORLATINIB
     Indication: Product used for unknown indication
     Route: 048
     Dates: start: 20230630

REACTIONS (1)
  - Lymphadenopathy [Unknown]
